FAERS Safety Report 16270100 (Version 1)
Quarter: 2019Q2

REPORT INFORMATION
  Report Type: Spontaneous
  Country: US (occurrence: US)
  Receive Date: 20190329
  Receipt Date: 20190329
  Transmission Date: 20190711
  Serious: Yes (Hospitalization)
  Sender: FDA-Public Use
  Company Number: None

PATIENT
  Age: 63 Year
  Sex: Female

DRUGS (1)
  1. CAPECITABINE 500MG ROXANE [Suspect]
     Active Substance: CAPECITABINE
     Indication: NASOPHARYNGEAL CANCER
     Route: 048
     Dates: start: 20190125

REACTIONS (1)
  - Transient ischaemic attack [None]

NARRATIVE: CASE EVENT DATE: 20190312
